FAERS Safety Report 16080230 (Version 3)
Quarter: 2019Q3

REPORT INFORMATION
  Report Type: Report from Study
  Country: US (occurrence: US)
  Receive Date: 20190315
  Receipt Date: 20190711
  Transmission Date: 20191004
  Serious: No
  Sender: FDA-Public Use
  Company Number: PHEH2019US010733

PATIENT
  Sex: Male

DRUGS (1)
  1. ENTRESTO [Suspect]
     Active Substance: SACUBITRIL\VALSARTAN
     Indication: CARDIAC FAILURE
     Route: 048

REACTIONS (5)
  - Weight fluctuation [Unknown]
  - Hypothyroidism [Unknown]
  - Weight increased [Unknown]
  - Weight loss poor [Unknown]
  - Heart rate decreased [Unknown]
